FAERS Safety Report 6347409-7 (Version None)
Quarter: 2009Q3

REPORT INFORMATION
  Report Type: 
  Country: None (occurrence: None)
  Receive Date: 20090910
  Receipt Date: 20090902
  Transmission Date: 20100115
  Serious: Yes (Other)
  Sender: FDA-Public Use
  Company Number: JP-AVENTIS-200911065JP

PATIENT
  Age: 58 Year
  Sex: Female
  Weight: 64.5 kg

DRUGS (13)
  1. ARAVA [Suspect]
     Indication: RHEUMATOID ARTHRITIS
     Route: 048
     Dates: start: 20080512, end: 20080921
  2. ARAVA [Suspect]
     Route: 048
     Dates: start: 20080922
  3. PREDNISOLONE [Concomitant]
     Indication: RHEUMATOID ARTHRITIS
     Route: 048
  4. LOXOT [Concomitant]
     Indication: RHEUMATOID ARTHRITIS
     Route: 048
  5. MTX                                /00113801/ [Concomitant]
     Indication: RHEUMATOID ARTHRITIS
     Route: 048
     Dates: end: 20080511
  6. MTX                                /00113801/ [Concomitant]
     Route: 048
     Dates: start: 20080512
  7. FAMOSTAGINE [Concomitant]
     Indication: GASTRITIS EROSIVE
  8. MERCAZOLE [Concomitant]
     Route: 048
  9. LUVOX [Concomitant]
     Route: 048
  10. LEXOTAN [Concomitant]
     Route: 048
  11. AMLODIPINE [Concomitant]
     Route: 048
  12. DIOVANE [Concomitant]
     Route: 048
  13. SOLANAX [Concomitant]
     Route: 048

REACTIONS (3)
  - ALANINE AMINOTRANSFERASE INCREASED [None]
  - ALOPECIA [None]
  - ASPARTATE AMINOTRANSFERASE INCREASED [None]
